FAERS Safety Report 7349071-3 (Version None)
Quarter: 2011Q1

REPORT INFORMATION
  Report Type: 
  Country: None (occurrence: None)
  Receive Date: 20110218
  Receipt Date: 20110215
  Transmission Date: 20110831
  Serious: Yes (Death)
  Sender: FDA-Public Use
  Company Number: 2128643-2011-00001

PATIENT
  Age: 2 Year
  Sex: Male

DRUGS (1)
  1. ALCOHOL PREP PADS, SWABS AND SWABSTICKS [Suspect]
     Indication: THERAPEUTIC SKIN CARE TOPICAL
     Dosage: DAILY, DRAIN

REACTIONS (9)
  - VOMITING [None]
  - BRAIN DEATH [None]
  - AGITATION [None]
  - PRODUCT QUALITY ISSUE [None]
  - CONVULSION [None]
  - MENINGITIS BACTERIAL [None]
  - PRODUCT CONTAMINATION [None]
  - BODY TEMPERATURE INCREASED [None]
  - BACTERIAL SEPSIS [None]
